FAERS Safety Report 11472910 (Version 1)
Quarter: 2015Q3

REPORT INFORMATION
  Report Type: Spontaneous
  Country: FI (occurrence: FI)
  Receive Date: 20150908
  Receipt Date: 20150908
  Transmission Date: 20151125
  Serious: Yes (Hospitalization)
  Sender: FDA-Public Use
  Company Number: FI-JAZZ-2014-FI-009712

PATIENT
  Age: 37 Year
  Sex: Female
  Weight: 90 kg

DRUGS (4)
  1. XYREM [Suspect]
     Active Substance: SODIUM OXYBATE
     Indication: NARCOLEPSY
     Dosage: 2.25 G, BID
     Route: 048
  2. XYREM [Suspect]
     Active Substance: SODIUM OXYBATE
     Indication: SLEEP PARALYSIS
     Dosage: 6 G PER NIGHT
     Route: 048
  3. XYREM [Suspect]
     Active Substance: SODIUM OXYBATE
     Indication: CATAPLEXY
     Dosage: 6 G PER NIGHT
     Route: 048
  4. XYREM [Suspect]
     Active Substance: SODIUM OXYBATE
     Indication: SOMNOLENCE
     Dosage: 2-4 G PER NIGHT
     Route: 048

REACTIONS (5)
  - Hallucination, auditory [Recovering/Resolving]
  - Neck pain [Unknown]
  - Psychotic disorder [Recovering/Resolving]
  - Anxiety [Unknown]
  - Paranoia [Recovering/Resolving]
